FAERS Safety Report 14099340 (Version 1)
Quarter: 2017Q4

REPORT INFORMATION
  Report Type: Spontaneous
  Country: US (occurrence: US)
  Receive Date: 20171017
  Receipt Date: 20171017
  Transmission Date: 20180321
  Serious: No
  Sender: FDA-Public Use
  Company Number: US-SAREPTA THERAPEUTICS, INC-SRP-000064-2017

PATIENT
  Sex: Male
  Weight: 32.9 kg

DRUGS (1)
  1. EXONDYS 51 [Suspect]
     Active Substance: ETEPLIRSEN
     Indication: DUCHENNE MUSCULAR DYSTROPHY
     Dosage: 1000 MG, WEEKLY
     Route: 065

REACTIONS (3)
  - Discomfort [Unknown]
  - Rash [Not Recovered/Not Resolved]
  - Pruritus [Unknown]
